FAERS Safety Report 16822887 (Version 33)
Quarter: 2023Q2

REPORT INFORMATION
  Report Type: Report from Study
  Country: BR (occurrence: BR)
  Receive Date: 20190918
  Receipt Date: 20230517
  Transmission Date: 20230721
  Serious: Yes (Hospitalization, Other)
  Sender: FDA-Public Use
  Company Number: BR-GLAXOSMITHKLINE-BR2019GSK067189

PATIENT

DRUGS (22)
  1. BELIMUMAB [Suspect]
     Active Substance: BELIMUMAB
     Indication: Systemic lupus erythematosus
     Dosage: UNK, CYC
     Route: 042
     Dates: start: 20190122
  2. BELIMUMAB [Suspect]
     Active Substance: BELIMUMAB
     Dosage: UNK
     Route: 042
     Dates: start: 20190219
  3. BELIMUMAB [Suspect]
     Active Substance: BELIMUMAB
     Dosage: UNK
     Route: 042
     Dates: start: 20190702
  4. BELIMUMAB [Suspect]
     Active Substance: BELIMUMAB
     Dosage: 630 MG
     Route: 042
     Dates: start: 20190730
  5. BELIMUMAB [Suspect]
     Active Substance: BELIMUMAB
     Dosage: UNK
     Route: 042
     Dates: start: 20200326
  6. BELIMUMAB [Suspect]
     Active Substance: BELIMUMAB
     Dosage: UNK
     Route: 042
     Dates: start: 20200505
  7. BELIMUMAB [Suspect]
     Active Substance: BELIMUMAB
     Dosage: UNK
     Route: 042
     Dates: start: 20200925
  8. BELIMUMAB [Suspect]
     Active Substance: BELIMUMAB
     Dosage: UNK
     Route: 042
     Dates: start: 20201029
  9. BELIMUMAB [Suspect]
     Active Substance: BELIMUMAB
     Dosage: UNK
     Route: 042
     Dates: start: 20201201
  10. BELIMUMAB [Suspect]
     Active Substance: BELIMUMAB
     Dosage: UNK
     Route: 042
     Dates: start: 20210219
  11. BELIMUMAB [Suspect]
     Active Substance: BELIMUMAB
     Dosage: UNK
     Route: 042
     Dates: start: 20210330
  12. BELIMUMAB [Suspect]
     Active Substance: BELIMUMAB
     Dosage: UNK
     Route: 042
     Dates: start: 20211019
  13. BELIMUMAB [Suspect]
     Active Substance: BELIMUMAB
     Dosage: UNK
     Dates: start: 20221021, end: 20221021
  14. BELIMUMAB [Suspect]
     Active Substance: BELIMUMAB
     Dosage: UNK
     Route: 042
     Dates: start: 20211123, end: 20211221
  15. BELIMUMAB [Suspect]
     Active Substance: BELIMUMAB
     Dosage: UNK
     Dates: start: 20221129, end: 20221129
  16. BELIMUMAB [Suspect]
     Active Substance: BELIMUMAB
     Dosage: UNK
     Route: 042
     Dates: start: 20211221, end: 20211221
  17. BELIMUMAB [Suspect]
     Active Substance: BELIMUMAB
     Dosage: UNK
     Dates: start: 20230121, end: 20230121
  18. BELIMUMAB [Suspect]
     Active Substance: BELIMUMAB
     Dosage: 620 G
     Route: 042
     Dates: start: 20230329
  19. MYCOPHENOLATE SODIUM [Suspect]
     Active Substance: MYCOPHENOLATE SODIUM
     Indication: Systemic lupus erythematosus
     Dosage: UNK
  20. HYDROXYCHLOROQUINE [Suspect]
     Active Substance: HYDROXYCHLOROQUINE
     Indication: Systemic lupus erythematosus
     Dosage: UNK
  21. CHLOROQUINE [Concomitant]
     Active Substance: CHLOROQUINE
     Indication: Infection
     Dosage: 400 MG
  22. CHLOROQUINE [Concomitant]
     Active Substance: CHLOROQUINE
     Dosage: 20 MG

REACTIONS (40)
  - Skin injury [Recovered/Resolved]
  - Skin lesion [Recovered/Resolved]
  - Systemic lupus erythematosus [Recovered/Resolved]
  - Leukocytosis [Recovered/Resolved]
  - Rash [Recovered/Resolved]
  - Urinary tract infection [Not Recovered/Not Resolved]
  - Migraine [Not Recovered/Not Resolved]
  - Headache [Unknown]
  - Pyrexia [Recovered/Resolved]
  - Dermatitis [Recovered/Resolved]
  - Pyeloplasty [Recovered/Resolved]
  - Weight decreased [Recovered/Resolved]
  - Abdominal infection [Recovered/Resolved]
  - Cutaneous lupus erythematosus [Recovered/Resolved]
  - Respiratory tract infection [Recovered/Resolved]
  - Polymyositis [Not Recovered/Not Resolved]
  - Urinary tract infection [Recovered/Resolved]
  - Immunodeficiency [Recovered/Resolved]
  - Herpes zoster [Recovered/Resolved]
  - Urinary tract infection [Recovering/Resolving]
  - Alopecia [Recovered/Resolved]
  - Headache [Recovered/Resolved]
  - Renal surgery [Recovered/Resolved]
  - Impaired healing [Recovered/Resolved]
  - Dermatitis allergic [Recovered/Resolved]
  - Pyrexia [Recovered/Resolved]
  - Discomfort [Unknown]
  - Urinary tract infection [Not Recovered/Not Resolved]
  - White blood cell count decreased [Unknown]
  - Pyrexia [Unknown]
  - Dyspnoea [Unknown]
  - Influenza like illness [Not Recovered/Not Resolved]
  - Therapy interrupted [Recovered/Resolved]
  - Inappropriate schedule of product administration [Unknown]
  - Product dose omission issue [Unknown]
  - Inappropriate schedule of product administration [Recovered/Resolved]
  - Inappropriate schedule of product administration [Unknown]
  - Inappropriate schedule of product administration [Recovered/Resolved]
  - Inappropriate schedule of product administration [Unknown]
  - Inappropriate schedule of product administration [Recovered/Resolved]

NARRATIVE: CASE EVENT DATE: 20200818
